FAERS Safety Report 25070251 (Version 1)
Quarter: 2025Q1

REPORT INFORMATION
  Report Type: Spontaneous
  Country: US (occurrence: None)
  Receive Date: 20250312
  Receipt Date: 20250312
  Transmission Date: 20250408
  Serious: No
  Sender: FDA-CTU
  Company Number: None

PATIENT
  Sex: Female

DRUGS (4)
  1. OPSUMIT [Suspect]
     Active Substance: MACITENTAN
     Indication: Pulmonary arterial hypertension
     Dosage: FREQUENCY : DAILY;?
     Route: 048
     Dates: start: 202407
  2. REMCDULIN MDV [Concomitant]
  3. REMUNITY CART W/FILLAID [Concomitant]
  4. REPLACE REMTY WTY PUVIP KIT [Concomitant]

REACTIONS (1)
  - Autoimmune disorder [None]
